FAERS Safety Report 12484264 (Version 3)
Quarter: 2016Q4

REPORT INFORMATION
  Report Type: Spontaneous
  Country: RU (occurrence: RU)
  Receive Date: 20160621
  Receipt Date: 20161013
  Transmission Date: 20170207
  Serious: Yes (Hospitalization, Other)
  Sender: FDA-Public Use
  Company Number: RU-SUN PHARMACEUTICAL INDUSTRIES LTD-2016RR-118747

PATIENT
  Age: 46 Year
  Sex: Female

DRUGS (6)
  1. DOXORUBICIN [Suspect]
     Active Substance: DOXORUBICIN
     Dosage: 280 MG, 2 SESSIONS
     Route: 065
     Dates: start: 201402, end: 201403
  2. PACLITAXEL. [Suspect]
     Active Substance: PACLITAXEL
     Indication: BREAST CANCER STAGE III
     Dosage: UNK
     Route: 065
  3. TRASTUZUMAB [Suspect]
     Active Substance: TRASTUZUMAB
     Indication: BREAST CANCER STAGE III
     Dosage: UNK, MONTHLY
     Route: 065
     Dates: start: 20130514, end: 20140109
  4. PACLITAXEL. [Suspect]
     Active Substance: PACLITAXEL
     Indication: METASTASES TO LIVER
  5. DOXORUBICIN [Suspect]
     Active Substance: DOXORUBICIN
     Indication: BREAST CANCER STAGE III
     Dosage: 620 MG TOTAL, 6 SESSIONS
     Route: 065
     Dates: start: 20121108, end: 201302
  6. TRASTUZUMAB [Suspect]
     Active Substance: TRASTUZUMAB
     Dosage: LAST INFUSION
     Route: 042
     Dates: end: 20140729

REACTIONS (4)
  - Congestive cardiomyopathy [Not Recovered/Not Resolved]
  - Cardiac failure chronic [Recovering/Resolving]
  - Hydrothorax [Recovering/Resolving]
  - Pericardial effusion [Recovering/Resolving]
